FAERS Safety Report 23719545 (Version 3)
Quarter: 2024Q2

REPORT INFORMATION
  Report Type: Spontaneous
  Country: US (occurrence: US)
  Receive Date: 20240408
  Receipt Date: 20240423
  Transmission Date: 20240716
  Serious: No
  Sender: FDA-Public Use
  Company Number: US-AIMMUNE THERAPEUTICS, INC.-2024AIMT00611

PATIENT

DRUGS (8)
  1. VOWST [Suspect]
     Active Substance: DONOR HUMAN STOOL SPORES (ETHANOL TREATED)
     Indication: Clostridium difficile infection
     Dosage: 4 CAPSULES DAILY FOR THREE DAYS
     Route: 048
     Dates: start: 20240306, end: 20240308
  2. VOWST [Suspect]
     Active Substance: DONOR HUMAN STOOL SPORES (ETHANOL TREATED)
     Dosage: 4 CAPSULES DAILY, LAST DOSE PRIOR TO EVENT
     Route: 048
     Dates: start: 20240308, end: 20240308
  3. GABAPENTIN [Concomitant]
     Active Substance: GABAPENTIN
     Indication: Trigeminal neuralgia
     Dosage: 100MG, 3 TIMES A DAY
  4. VITAMIN D NOS [Concomitant]
     Active Substance: VITAMIN D NOS
     Indication: Product used for unknown indication
     Dosage: ONCE WEEKLY
  5. ASPIRIN [Concomitant]
     Active Substance: ASPIRIN
     Indication: Stent placement
     Dosage: DAILY
  6. AMITRIPTYLINE [Concomitant]
     Active Substance: AMITRIPTYLINE
     Indication: Trigeminal neuralgia
     Dosage: AT BEDTIME
  7. PROBIOTICS NOS [Concomitant]
     Active Substance: PROBIOTICS NOS
     Indication: Product used for unknown indication
     Dosage: DID NOT TAKE FOR THE WEEK TAKING VOWST
  8. ESTRADIOL [Concomitant]
     Active Substance: ESTRADIOL
     Indication: Hormone replacement therapy
     Dosage: PATCH WEEKLY

REACTIONS (1)
  - Klebsiella urinary tract infection [Not Recovered/Not Resolved]
